FAERS Safety Report 9208987 (Version 1)
Quarter: 2013Q1

REPORT INFORMATION
  Report Type: Spontaneous
  Country: US (occurrence: None)
  Receive Date: 20120820
  Receipt Date: 20120820
  Transmission Date: 20140127
  Serious: Yes (Other)
  Sender: FDA-Public Use
  Company Number: 058338

PATIENT
  Sex: Male
  Weight: 90.7 kg

DRUGS (4)
  1. LACOSAMIDE [Suspect]
     Indication: CONVULSION
     Dosage: 1/2 PILL
     Route: 048
     Dates: start: 201206, end: 20120626
  2. KEPPRA [Suspect]
     Dosage: 1500 MG QD, STRENGTH: 500 MG, THREE 400 MG TABLETS IN THE AM
     Route: 048
     Dates: start: 20080428
  3. DEPAKOTE [Concomitant]
  4. EFFEXOR [Concomitant]

REACTIONS (5)
  - Convulsion [None]
  - Dizziness [None]
  - Lethargy [None]
  - Dyspnoea [None]
  - Gait disturbance [None]
